FAERS Safety Report 9802765 (Version 2)
Quarter: 2014Q1

REPORT INFORMATION
  Report Type: Spontaneous
  Country: US (occurrence: US)
  Receive Date: 20140108
  Receipt Date: 20140108
  Transmission Date: 20141002
  Serious: Yes (Other)
  Sender: FDA-Public Use
  Company Number: US-AMGEN-USASP2013023575

PATIENT
  Age: 60 Year
  Sex: Male

DRUGS (2)
  1. ENBREL [Suspect]
     Indication: PSORIASIS
     Dosage: 50 MG, 2 TIMES/WK
     Route: 065
     Dates: end: 2013
  2. HUMIRA [Concomitant]
     Dosage: UNK

REACTIONS (4)
  - Diplopia [Recovered/Resolved]
  - Ophthalmoplegia [Recovered/Resolved]
  - Strabismus [Recovered/Resolved]
  - Drug ineffective [Not Recovered/Not Resolved]
